FAERS Safety Report 12684426 (Version 9)
Quarter: 2018Q2

REPORT INFORMATION
  Report Type: Spontaneous
  Country: JP (occurrence: JP)
  Receive Date: 20160825
  Receipt Date: 20180601
  Transmission Date: 20180711
  Serious: Yes (Hospitalization, Other)
  Sender: FDA-Public Use
  Company Number: DE-ACTELION-A-US2016-141278

PATIENT
  Age: 33 Year
  Sex: Female

DRUGS (23)
  1. VENTAVIS [Suspect]
     Active Substance: ILOPROST
     Indication: PULMONARY ARTERIAL HYPERTENSION
     Dosage: 6 ID
     Route: 055
     Dates: start: 20160712
  2. VENTAVIS [Suspect]
     Active Substance: ILOPROST
     Dosage: 5 ?G, UNK
     Route: 055
     Dates: start: 20160713, end: 20160814
  3. VENTAVIS [Suspect]
     Active Substance: ILOPROST
     Dosage: 2.5 ?G, QD
     Route: 055
     Dates: start: 20160712, end: 20160712
  4. BERAPROST SODIUM [Concomitant]
     Active Substance: BERAPROST SODIUM
     Dosage: UNK
  5. OXYGEN. [Concomitant]
     Active Substance: OXYGEN
  6. VENTAVIS [Suspect]
     Active Substance: ILOPROST
     Dosage: 5 ?G, QD
     Route: 055
     Dates: start: 20170213
  7. UPTRAVI [Suspect]
     Active Substance: SELEXIPAG
     Dosage: 400 ?G, BID
     Route: 048
     Dates: start: 20170213, end: 20170412
  8. UPTRAVI [Suspect]
     Active Substance: SELEXIPAG
     Dosage: 800 ?G, BID
     Route: 048
     Dates: start: 20170808
  9. VENTAVIS [Suspect]
     Active Substance: ILOPROST
     Dosage: 5 ?G, QD
     Route: 055
     Dates: start: 20160907, end: 20160928
  10. UPTRAVI [Suspect]
     Active Substance: SELEXIPAG
     Indication: PULMONARY ARTERIAL HYPERTENSION
     Dosage: 200 ?G, BID
     Route: 048
     Dates: start: 20170213
  11. FERROUS SODIUM CITRATE [Concomitant]
     Active Substance: SODIUM FERROUS CITRATE
  12. VENTAVIS [Suspect]
     Active Substance: ILOPROST
     Dosage: 30 ?G, UNK
     Route: 055
     Dates: start: 20170712, end: 20170815
  13. TRANEXAMIC ACID. [Concomitant]
     Active Substance: TRANEXAMIC ACID
  14. VENTAVIS [Suspect]
     Active Substance: ILOPROST
     Dosage: 5 ?G, QD
     Route: 055
     Dates: start: 20160712, end: 20160712
  15. VENTAVIS [Suspect]
     Active Substance: ILOPROST
     Dosage: 5 ?G, QD
     Route: 055
     Dates: start: 20160929
  16. UPTRAVI [Suspect]
     Active Substance: SELEXIPAG
     Dosage: 1200 ?G, QD
     Route: 048
     Dates: start: 20170413, end: 20170807
  17. UPTRAVI [Suspect]
     Active Substance: SELEXIPAG
     Dosage: 1200 MCG, UNK
     Route: 048
     Dates: start: 20170413, end: 20170807
  18. NIFEDIPINE. [Concomitant]
     Active Substance: NIFEDIPINE
     Dosage: UNK
  19. OPSUMIT [Suspect]
     Active Substance: MACITENTAN
     Indication: PULMONARY ARTERIAL HYPERTENSION
     Dosage: 10 MG, QD
     Route: 048
     Dates: start: 20150817
  20. VENTAVIS [Suspect]
     Active Substance: ILOPROST
     Dosage: 15 ?G, UNK
     Route: 055
     Dates: start: 20170907
  21. UPTRAVI [Suspect]
     Active Substance: SELEXIPAG
     Dosage: 1600 MCG, UNK
     Route: 048
     Dates: start: 20170808
  22. ADCIRCA [Concomitant]
     Active Substance: TADALAFIL
     Dosage: UNK
  23. ADONAMIN [Concomitant]

REACTIONS (10)
  - Haemoptysis [Recovered/Resolved]
  - White blood cell count decreased [Recovered/Resolved]
  - Blood pressure decreased [Unknown]
  - Oropharyngeal pain [Unknown]
  - Nasopharyngitis [Unknown]
  - Inappropriate schedule of drug administration [Unknown]
  - Headache [Recovering/Resolving]
  - Platelet count decreased [Unknown]
  - Pain in jaw [Unknown]
  - Decreased appetite [Recovering/Resolving]

NARRATIVE: CASE EVENT DATE: 2016
